FAERS Safety Report 21315081 (Version 1)
Quarter: 2022Q3

REPORT INFORMATION
  Report Type: Spontaneous
  Country: JP (occurrence: JP)
  Receive Date: 20220909
  Receipt Date: 20220909
  Transmission Date: 20221027
  Serious: Yes (Death, Other)
  Sender: FDA-Public Use
  Company Number: JP-DSJP-DSJ-2020-140073

PATIENT
  Age: 55 Year
  Sex: Female
  Weight: 66 kg

DRUGS (1)
  1. ENHERTU [Suspect]
     Active Substance: FAM-TRASTUZUMAB DERUXTECAN-NXKI
     Indication: Breast cancer
     Dosage: 4.4 MG/KG, ONCE EVERY 3 WK
     Route: 041
     Dates: start: 20200706, end: 20201204

REACTIONS (8)
  - Disease progression [Fatal]
  - Disseminated intravascular coagulation [Unknown]
  - Infection [Unknown]
  - Chest wall mass [Unknown]
  - Lymphadenopathy [Unknown]
  - Anaemia [Unknown]
  - Neutrophil count decreased [Unknown]
  - Underdose [Unknown]

NARRATIVE: CASE EVENT DATE: 20200101
